FAERS Safety Report 9729112 (Version 1)
Quarter: 2013Q4

REPORT INFORMATION
  Report Type: Spontaneous
  Country: US (occurrence: None)
  Receive Date: 20131204
  Receipt Date: 20131204
  Transmission Date: 20140711
  Serious: Yes (Life-Threatening, Hospitalization)
  Sender: FDA-Public Use
  Company Number: None

PATIENT
  Age: 47 Year
  Sex: Female
  Weight: 63.5 kg

DRUGS (1)
  1. ESTRATEST [Suspect]
     Indication: HYSTERECTOMY
     Dosage: C-BE(50:50).4MG DHEA 8MG/TEST 2MG / 1 A DAY?C-PROGESTERONE 125MG   1 A DAY
     Dates: start: 201309, end: 201311

REACTIONS (4)
  - Pulmonary embolism [None]
  - Product compounding quality issue [None]
  - Product formulation issue [None]
  - Drug level increased [None]
